FAERS Safety Report 6613070-7 (Version None)
Quarter: 2010Q1

REPORT INFORMATION
  Report Type: 
  Country: None (occurrence: None)
  Receive Date: 20100304
  Receipt Date: 20100223
  Transmission Date: 20100710
  Serious: Yes (Hospitalization)
  Sender: FDA-Public Use
  Company Number: IT-BIOGENIDEC-2010BI006158

PATIENT
  Age: 28 Year
  Sex: Male

DRUGS (1)
  1. TYSABRI [Suspect]
     Indication: DRUG USE FOR UNKNOWN INDICATION
     Route: 042
     Dates: end: 20091016

REACTIONS (2)
  - ANAEMIA [None]
  - BODY TEMPERATURE FLUCTUATION [None]
